FAERS Safety Report 10081521 (Version 1)
Quarter: 2014Q2

REPORT INFORMATION
  Report Type: Spontaneous
  Country: IT (occurrence: IT)
  Receive Date: 20140416
  Receipt Date: 20140416
  Transmission Date: 20141212
  Serious: Yes (Hospitalization)
  Sender: FDA-Public Use
  Company Number: IT-PFIZER INC-2014103085

PATIENT
  Sex: 0

DRUGS (2)
  1. SIMVASTATIN [Suspect]
  2. RAMIPRIL [Suspect]

REACTIONS (1)
  - Poisoning deliberate [Recovered/Resolved]
